FAERS Safety Report 9562749 (Version 1)
Quarter: 2013Q3

REPORT INFORMATION
  Report Type: Spontaneous
  Country: US (occurrence: US)
  Receive Date: 20130927
  Receipt Date: 20130927
  Transmission Date: 20140515
  Serious: Yes (Other)
  Sender: FDA-Public Use
  Company Number: US-ACTAVIS-2013-16827

PATIENT
  Sex: Female

DRUGS (1)
  1. FENTANYL-100 (WATSON LABORATORIES) [Suspect]
     Indication: PAIN
     Dosage: UNK UNK, UNKNOWN
     Route: 062

REACTIONS (3)
  - Weight decreased [Unknown]
  - Malaise [Unknown]
  - Feeling abnormal [Unknown]
